FAERS Safety Report 6810771-2 (Version None)
Quarter: 2010Q2

REPORT INFORMATION
  Report Type: 
  Country: None (occurrence: None)
  Receive Date: 20100630
  Receipt Date: 20100625
  Transmission Date: 20101027
  Serious: Yes (Death, Hospitalization, Other)
  Sender: FDA-Public Use
  Company Number: PHHY2010JP39776

PATIENT
  Age: 71 Year
  Sex: Female

DRUGS (2)
  1. NEORAL [Suspect]
     Indication: VASCULITIS
     Route: 048
  2. PREDNISOLONE [Suspect]
     Indication: VASCULITIS
     Route: 048

REACTIONS (9)
  - GENERAL PHYSICAL HEALTH DETERIORATION [None]
  - GLOMERULONEPHRITIS RAPIDLY PROGRESSIVE [None]
  - HERPES ZOSTER [None]
  - MENINGITIS CRYPTOCOCCAL [None]
  - MENINGITIS VIRAL [None]
  - SEGMENTED HYALINISING VASCULITIS [None]
  - ULCER [None]
  - URINARY TRACT INFECTION [None]
  - VASCULITIS [None]
